FAERS Safety Report 4450465-4 (Version None)
Quarter: 2004Q3

REPORT INFORMATION
  Report Type: 
  Country: None (occurrence: None)
  Receive Date: 20040915
  Receipt Date: 20040908
  Transmission Date: 20050211
  Serious: Yes (Death)
  Sender: FDA-Public Use
  Company Number: MK200409-0067-1

PATIENT
  Age: 75 Year
  Sex: Female

DRUGS (10)
  1. CONRAY [Suspect]
     Indication: COMPUTERISED TOMOGRAM
     Dosage: IV, ONCE
     Route: 042
     Dates: start: 20040823, end: 20040823
  2. ASPIRIN [Concomitant]
  3. FUROSEMIDE [Concomitant]
  4. PRAVASTATIN [Concomitant]
  5. ENOXAPARIN SODIUM [Concomitant]
  6. CAPTOPRIL [Concomitant]
  7. AMIODARONE [Concomitant]
  8. DIPYRONE [Concomitant]
  9. RANITIDINE [Concomitant]
  10. HYDROCHLOROTHIAZIDE [Concomitant]

REACTIONS (2)
  - CARDIAC FAILURE [None]
  - RESUSCITATION [None]
